FAERS Safety Report 21563461 (Version 2)
Quarter: 2024Q1

REPORT INFORMATION
  Report Type: Report from Study
  Country: US (occurrence: US)
  Receive Date: 20221108
  Receipt Date: 20240316
  Transmission Date: 20240410
  Serious: No
  Sender: FDA-Public Use
  Company Number: US-ABBVIE-22K-163-4380333-00

PATIENT
  Sex: Female

DRUGS (2)
  1. HUMIRA [Suspect]
     Active Substance: ADALIMUMAB
     Indication: Rheumatoid arthritis
     Dosage: CITRATE FREE
     Route: 058
     Dates: start: 20220329
  2. PFIZER-BIONTECH COVID-19 VACCINE [Concomitant]
     Active Substance: TOZINAMERAN
     Indication: COVID-19 immunisation
     Dosage: FREQUENCY: ONE IN ONCE
     Route: 030

REACTIONS (15)
  - Injection site pain [Recovered/Resolved]
  - Weight increased [Recovered/Resolved]
  - Fatigue [Recovered/Resolved]
  - Weight increased [Not Recovered/Not Resolved]
  - Oedema [Unknown]
  - Rash [Not Recovered/Not Resolved]
  - Back pain [Recovered/Resolved]
  - Arthralgia [Recovered/Resolved]
  - Chest discomfort [Unknown]
  - Dyspnoea [Not Recovered/Not Resolved]
  - Rash [Not Recovered/Not Resolved]
  - Back pain [Not Recovered/Not Resolved]
  - Chest pain [Not Recovered/Not Resolved]
  - Urinary tract infection [Unknown]
  - Fluid retention [Unknown]

NARRATIVE: CASE EVENT DATE: 20220101
